FAERS Safety Report 7804516-7 (Version None)
Quarter: 2011Q4

REPORT INFORMATION
  Report Type: 
  Country: None (occurrence: None)
  Receive Date: 20111010
  Receipt Date: 20110927
  Transmission Date: 20120403
  Serious: Yes (Hospitalization, Other)
  Sender: FDA-Public Use
  Company Number: JP-NOVOPROD-334671

PATIENT

DRUGS (3)
  1. AMARYL [Concomitant]
     Dosage: 0.5 MG, QD
     Route: 048
  2. VICTOZA [Suspect]
     Indication: TYPE 2 DIABETES MELLITUS
     Dosage: 0.3 MG, QD
     Route: 058
     Dates: start: 20110817, end: 20110823
  3. MAGNESIUM OXIDE [Concomitant]
     Route: 048

REACTIONS (1)
  - COLITIS [None]
